FAERS Safety Report 5018062-X (Version None)
Quarter: 2006Q2

REPORT INFORMATION
  Report Type: 
  Country: None (occurrence: None)
  Receive Date: 20060530
  Receipt Date: 20060517
  Transmission Date: 20061013
  Serious: Yes (Death)
  Sender: FDA-Public Use
  Company Number: B0425100A

PATIENT

DRUGS (6)
  1. METHADONE HCL [Suspect]
  2. PAXIL [Suspect]
  3. LORAZEPAM [Suspect]
  4. CITALOPRAM HYDROBROMIDE [Suspect]
  5. TRAMADOL HCL [Suspect]
  6. METHYLENEDIOXYMETHAMPHET. (METHYLENEDIOXYMETHAMPHET.) [Suspect]

REACTIONS (1)
  - OVERDOSE [None]
